FAERS Safety Report 18241802 (Version 1)
Quarter: 2020Q3

REPORT INFORMATION
  Report Type: Spontaneous
  Country: US (occurrence: US)
  Receive Date: 20200908
  Receipt Date: 20200908
  Transmission Date: 20201103
  Serious: No
  Sender: FDA-Public Use
  Company Number: NVSC2020US240867

PATIENT
  Sex: Male

DRUGS (1)
  1. EXTAVIA [Suspect]
     Active Substance: INTERFERON BETA-1B
     Indication: PRODUCT USED FOR UNKNOWN INDICATION
     Dosage: 1 ML, EVERY OTHER DAY
     Route: 065
     Dates: start: 20200830

REACTIONS (4)
  - Back pain [Unknown]
  - Depressed mood [Unknown]
  - Pyrexia [Unknown]
  - Fatigue [Unknown]
